FAERS Safety Report 15580703 (Version 1)
Quarter: 2018Q4

REPORT INFORMATION
  Report Type: Spontaneous
  Country: US (occurrence: US)
  Receive Date: 20181102
  Receipt Date: 20181102
  Transmission Date: 20190205
  Serious: Yes (Other)
  Sender: FDA-Public Use
  Company Number: None

PATIENT
  Age: 67 Year
  Sex: Female

DRUGS (3)
  1. LOSARTAN 50 MG [Concomitant]
     Active Substance: LOSARTAN
  2. D VIT B12 VIT [Concomitant]
  3. OSELTAMIVIR PHOS75 MG [Suspect]
     Active Substance: OSELTAMIVIR PHOSPHATE
     Indication: INFLUENZA
     Route: 048
     Dates: start: 20181028, end: 20181102

REACTIONS (5)
  - Tremor [None]
  - Chills [None]
  - Hyperhidrosis [None]
  - Headache [None]
  - Abdominal pain upper [None]

NARRATIVE: CASE EVENT DATE: 20181102
